FAERS Safety Report 5641304-4 (Version None)
Quarter: 2008Q1

REPORT INFORMATION
  Report Type: 
  Country: None (occurrence: None)
  Receive Date: 20080227
  Receipt Date: 20070510
  Transmission Date: 20080703
  Serious: No
  Sender: FDA-Public Use
  Company Number: A0650555A

PATIENT
  Sex: Male

DRUGS (1)
  1. NICORETTE [Suspect]
     Indication: DRUG USE FOR UNKNOWN INDICATION

REACTIONS (1)
  - DENTAL CARIES [None]
